FAERS Safety Report 6826808-0 (Version None)
Quarter: 2010Q3

REPORT INFORMATION
  Report Type: 
  Country: None (occurrence: None)
  Receive Date: 20100709
  Receipt Date: 20100630
  Transmission Date: 20110219
  Serious: Yes (Hospitalization)
  Sender: FDA-Public Use
  Company Number: JP-ROCHE-688468

PATIENT
  Age: 58 Year
  Sex: Male
  Weight: 55 kg

DRUGS (18)
  1. TOCILIZUMAB [Suspect]
     Indication: RHEUMATOID ARTHRITIS
     Dosage: FORM: INJECTION
     Route: 041
     Dates: start: 20080804, end: 20080804
  2. TOCILIZUMAB [Suspect]
     Route: 041
     Dates: start: 20080908, end: 20080908
  3. TOCILIZUMAB [Suspect]
     Route: 041
     Dates: start: 20081002, end: 20081002
  4. TOCILIZUMAB [Suspect]
     Route: 041
     Dates: start: 20081030, end: 20081030
  5. TOCILIZUMAB [Suspect]
     Route: 041
     Dates: start: 20081127, end: 20081127
  6. TOCILIZUMAB [Suspect]
     Route: 041
     Dates: start: 20081225, end: 20081225
  7. TOCILIZUMAB [Suspect]
     Route: 041
     Dates: start: 20090122, end: 20090122
  8. TOCILIZUMAB [Suspect]
     Route: 041
     Dates: start: 20090216, end: 20090216
  9. SULFAMETHOXAZOLE AND TRIMETHOPRIM [Suspect]
     Indication: PRODUCT USED FOR UNKNOWN INDICATION
     Route: 042
     Dates: start: 20090301, end: 20090316
  10. PANIPENEM [Suspect]
     Indication: PRODUCT USED FOR UNKNOWN INDICATION
     Dosage: DRUG: PANIPENEM_BETAMIPRON(PANIPENEM_BETAMIPRON)
     Route: 042
     Dates: start: 20090301, end: 20090316
  11. AMBISOME [Suspect]
     Indication: PRODUCT USED FOR UNKNOWN INDICATION
     Route: 042
     Dates: start: 20090301, end: 20090316
  12. LEVOFLOXACIN [Suspect]
     Indication: PRODUCT USED FOR UNKNOWN INDICATION
     Dosage: DOSE FORM: PERORAL AGENT
     Route: 048
     Dates: start: 20090328, end: 20090408
  13. URSO 250 [Concomitant]
     Dosage: FORM:PERORAL AGENT
     Route: 048
  14. ONEALFA [Concomitant]
     Dosage: FORM: PERORAL AGENT
     Route: 048
  15. ZYLORIC [Concomitant]
     Route: 048
  16. RENAGEL [Concomitant]
     Dosage: DRUG: RENAGEL TABLETS 250MG(SEVELAMER HYDROCHLORIDE)
     Route: 048
  17. CALCIUM CARBONATE, PRECIPITATED [Concomitant]
     Dosage: FORM: PERORAL AGENT
     Route: 048
  18. MS CONTIN [Concomitant]
     Dosage: FORM: SUSTAINED-RELEASE TABLET
     Route: 048
     Dates: start: 20090226, end: 20090306

REACTIONS (3)
  - MUCOCUTANEOUS RASH [None]
  - PNEUMONIA [None]
  - SEPTIC SHOCK [None]
